FAERS Safety Report 10211386 (Version 1)
Quarter: 2014Q2

REPORT INFORMATION
  Report Type: Spontaneous
  Country: GB (occurrence: None)
  Receive Date: 20140528
  Receipt Date: 20140528
  Transmission Date: 20141212
  Serious: Yes (Disabling)
  Sender: FDA-Public Use
  Company Number: AUR-APL-2014-06065

PATIENT
  Age: 31 Year
  Sex: Male
  Weight: 75 kg

DRUGS (1)
  1. SIMVASTATIN (SIMVASTATIN) [Suspect]
     Indication: HYPERCHOLESTEROLAEMIA
     Route: 048
     Dates: start: 20131203, end: 20140224

REACTIONS (9)
  - Malaise [None]
  - Arthralgia [None]
  - Myalgia [None]
  - Paraesthesia [None]
  - Dizziness [None]
  - Chest pain [None]
  - Gastrointestinal disorder [None]
  - Disturbance in attention [None]
  - Quality of life decreased [None]
